FAERS Safety Report 8947748 (Version 1)
Quarter: 2012Q4

REPORT INFORMATION
  Report Type: 
  Country: US (occurrence: US)
  Receive Date: 20121204
  Receipt Date: 20121204
  Transmission Date: 20130627
  Serious: Yes (Other)
  Sender: FDA-Public Use
  Company Number: US-PFIZER INC-2012297505

PATIENT
  Sex: Female

DRUGS (1)
  1. DIMETAPP [Suspect]
     Dosage: UNK

REACTIONS (1)
  - Dyspnoea [Unknown]
